FAERS Safety Report 4619549-1 (Version None)
Quarter: 2005Q1

REPORT INFORMATION
  Report Type: 
  Country: None (occurrence: None)
  Receive Date: 20050318
  Receipt Date: 20050318
  Transmission Date: 20050727
  Serious: Yes (Hospitalization)
  Sender: FDA-Public Use
  Company Number: None

PATIENT
  Sex: Female
  Weight: 59.4212 kg

DRUGS (11)
  1. METOPROLOL TARTRATE [Suspect]
     Indication: HYPERTENSION
     Dosage: 50 MG PO QD [PRIOR TO ADDMISSION]
     Route: 048
  2. PROPYLTHIOURACIL [Concomitant]
  3. IMDUR [Concomitant]
  4. K-DUR 10 [Concomitant]
  5. LASIX [Concomitant]
  6. ALDOMET [Concomitant]
  7. ASPIRIN [Concomitant]
  8. ZAROXOLYN [Concomitant]
  9. NORVASC [Concomitant]
  10. NORVASC [Concomitant]
  11. NEURONTIN [Concomitant]

REACTIONS (2)
  - LOSS OF CONSCIOUSNESS [None]
  - SYNCOPE [None]
